FAERS Safety Report 10161741 (Version 1)
Quarter: 2014Q2

REPORT INFORMATION
  Report Type: Spontaneous
  Country: GB (occurrence: None)
  Receive Date: 20140507
  Receipt Date: 20140507
  Transmission Date: 20141212
  Serious: Yes (Hospitalization, Other)
  Sender: FDA-Public Use
  Company Number: AUR-APL-2014-05236

PATIENT
  Age: 29 Year
  Sex: Male

DRUGS (1)
  1. RISPERIDONE [Suspect]
     Indication: BIPOLAR DISORDER
     Route: 048
     Dates: start: 2011

REACTIONS (9)
  - Psychotic disorder [None]
  - Medication error [None]
  - Weight increased [None]
  - Physical disability [None]
  - Living in residential institution [None]
  - Mental impairment [None]
  - Psychotic disorder [None]
  - Incorrect dose administered [None]
  - Disease recurrence [None]
